FAERS Safety Report 13840709 (Version 2)
Quarter: 2017Q3

REPORT INFORMATION
  Report Type: Spontaneous
  Country: US (occurrence: US)
  Receive Date: 20170807
  Receipt Date: 20170828
  Transmission Date: 20171127
  Serious: Yes (Hospitalization)
  Sender: FDA-Public Use
  Company Number: US-VERTEX PHARMACEUTICALS-2017-004209

PATIENT
  Age: 20 Year
  Sex: Female

DRUGS (22)
  1. MONTELUKAST [Concomitant]
     Active Substance: MONTELUKAST SODIUM
     Dosage: 1 DF, QD
     Route: 048
  2. NOXAFIL [Concomitant]
     Active Substance: POSACONAZOLE
     Dosage: 3 DF, BID WITH MORNING AND EVENING MEAL
     Route: 048
  3. POSACONAZOLE [Concomitant]
     Active Substance: POSACONAZOLE
  4. PERIACTIN [Concomitant]
     Active Substance: CYPROHEPTADINE HYDROCHLORIDE
     Dosage: 2 MG, QID (FOR WEEK ONE) AND THEN 4 MG, QID
     Route: 048
  5. ALBUTEROL. [Concomitant]
     Active Substance: ALBUTEROL
     Indication: WHEEZING
  6. ZYRTEC [Concomitant]
     Active Substance: CETIRIZINE HYDROCHLORIDE
     Dosage: 10 MG, QD
     Route: 048
  7. PEPTAMEN [Concomitant]
     Dosage: 2 CANS DURING DAY AND 3 CANS AT NIGHT
  8. ORKAMBI [Suspect]
     Active Substance: IVACAFTOR\LUMACAFTOR
     Indication: CYSTIC FIBROSIS
     Dosage: 2 DF (200/125), BID
     Route: 048
  9. ALBUTEROL. [Concomitant]
     Active Substance: ALBUTEROL
     Indication: DYSPNOEA
     Dosage: 2.5 MG, QID
     Route: 055
  10. OMALIZUMAB. [Concomitant]
     Active Substance: OMALIZUMAB
     Dosage: 300 MG, UNK
     Route: 058
  11. ZENPEP [Concomitant]
     Active Substance: PANCRELIPASE AMYLASE\PANCRELIPASE LIPASE\PANCRELIPASE PROTEASE
     Dosage: 4 DF, QID WITH MEALS AND BEFORE NIGHT FEED. TAKE 2 CAPS WITH SNACKS
     Route: 048
  12. PULMOZYME [Concomitant]
     Active Substance: DORNASE ALFA
     Dosage: UNK, QD
     Route: 055
  13. DESYREL [Concomitant]
     Active Substance: TRAZODONE HYDROCHLORIDE
     Dosage: 1 DF, QD AT BEDTIME
  14. CALCIUM CITRATE [Concomitant]
     Active Substance: CALCIUM CITRATE
     Dosage: 3 DF, BID
     Route: 048
  15. COLYMYCIN [Concomitant]
     Dosage: 150 MG, BID (MIXED WITH 4 ML STERILE WATED)
     Route: 055
  16. PANTOPRAZOLE [Concomitant]
     Active Substance: PANTOPRAZOLE
     Dosage: 1 DF, QD
     Route: 048
  17. ALBUTEROL HFA [Concomitant]
     Active Substance: ALBUTEROL SULFATE
     Dosage: 2 PUFFS, QID
     Route: 055
  18. MELATONIN [Concomitant]
     Active Substance: MELATONIN
     Dosage: 10 MG, QD AT BEDTIME
     Route: 048
  19. HYPERSAL [Concomitant]
     Dosage: 4 ML, BID
     Route: 055
  20. FLOVENT HFA [Concomitant]
     Active Substance: FLUTICASONE PROPIONATE
     Dosage: 2 PUFFS, BID
     Route: 055
  21. REPLESTA [Concomitant]
     Active Substance: CHOLECALCIFEROL
     Dosage: 1 WAFER, QD
     Route: 048
  22. TOBI [Concomitant]
     Active Substance: TOBRAMYCIN
     Dosage: 5 ML, QD (28 DAYS OFF AND ON)
     Route: 048

REACTIONS (1)
  - Infective pulmonary exacerbation of cystic fibrosis [Recovering/Resolving]

NARRATIVE: CASE EVENT DATE: 20170801
